FAERS Safety Report 8905137 (Version 1)
Quarter: 2012Q4

REPORT INFORMATION
  Report Type: 
  Country: US (occurrence: US)
  Receive Date: 20121113
  Receipt Date: 20121113
  Transmission Date: 20130627
  Serious: No
  Sender: FDA-Public Use
  Company Number: US-009507513-1211USA002441

PATIENT
  Sex: Male

DRUGS (7)
  1. PEGINTRON [Suspect]
     Indication: HEPATITIS C
     Dosage: 150 Microgram, qw
     Dates: start: 20120928
  2. VICTRELIS [Suspect]
     Dosage: UNK
     Dates: start: 201210
  3. RIBAVIRIN [Suspect]
  4. FLOMAX (MORNIFLUMATE) [Concomitant]
  5. CENTRUM (MINERALS (UNSPECIFIED) (+) VITAMINS (UNSPECIFIED)) [Concomitant]
  6. ATENOLOL [Concomitant]
  7. DIGOXIN [Concomitant]

REACTIONS (7)
  - Asthenia [Recovering/Resolving]
  - Peripheral coldness [Recovering/Resolving]
  - Rectal spasm [Recovering/Resolving]
  - Fatigue [Recovering/Resolving]
  - Chills [Recovering/Resolving]
  - Headache [Recovered/Resolved]
  - Product quality issue [Unknown]
